FAERS Safety Report 4700743-6 (Version None)
Quarter: 2005Q2

REPORT INFORMATION
  Report Type: 
  Country: None (occurrence: None)
  Receive Date: 20050627
  Receipt Date: 20050608
  Transmission Date: 20051028
  Serious: No
  Sender: FDA-Public Use
  Company Number: 2005FR-00020

PATIENT
  Age: 48 Year
  Sex: Female

DRUGS (8)
  1. CEFUROXIME [Suspect]
     Indication: CELLULITIS
     Dosage: 1.5G, 3XDAY, INTRAVENOUS
     Route: 042
     Dates: start: 20040504, end: 20050512
  2. CLINDAMYCIN [Suspect]
     Indication: CELLULITIS
     Dosage: 450MG, 4XDAY, ORAL
     Route: 048
     Dates: start: 20040504, end: 20050512
  3. METRONIDAZOLE [Concomitant]
  4. IBUPROFEN [Concomitant]
  5. ENOXAPARIN SODIUM [Concomitant]
  6. PARAFFIN LIQUID [Concomitant]
  7. TEICOPLANIN [Concomitant]
  8. ACETAMINOPHEN W/ CODEINE [Concomitant]

REACTIONS (2)
  - RASH [None]
  - SWOLLEN TONGUE [None]
